FAERS Safety Report 20587467 (Version 2)
Quarter: 2022Q2

REPORT INFORMATION
  Report Type: Report from Study
  Country: FR (occurrence: FR)
  Receive Date: 20220314
  Receipt Date: 20220518
  Transmission Date: 20220720
  Serious: Yes (Hospitalization, Other)
  Sender: FDA-Public Use
  Company Number: FR-CELLTRION INC.-2022FR002699

PATIENT

DRUGS (6)
  1. INFLIXIMAB [Suspect]
     Active Substance: INFLIXIMAB
     Indication: Colitis ulcerative
     Dosage: UNK
     Route: 042
     Dates: start: 20201016, end: 20201126
  2. VEDOLIZUMAB [Suspect]
     Active Substance: VEDOLIZUMAB
     Indication: Colitis ulcerative
     Dosage: 300 MILLIGRAM
     Route: 042
     Dates: start: 20210121, end: 20210204
  3. DIPROSONE [Concomitant]
     Active Substance: BETAMETHASONE DIPROPIONATE
     Indication: Psoriasis
     Dosage: UNK
     Dates: start: 20210121
  4. PARACETAMOL/CODEINE MYLAN [Concomitant]
     Indication: Abdominal pain
     Dosage: UNK
     Dates: start: 20201119, end: 20210204
  5. CLOBEX [CLOBETASOL PROPIONATE] [Concomitant]
     Indication: Psoriasis
     Dosage: UNK
     Dates: start: 20210204
  6. CICLOPIROX OLAMINE [Concomitant]
     Active Substance: CICLOPIROX OLAMINE
     Indication: Psoriasis
     Dosage: UNK
     Dates: start: 20210121

REACTIONS (2)
  - Cholestasis [Recovered/Resolved]
  - Hepatic cytolysis [Recovered/Resolved]

NARRATIVE: CASE EVENT DATE: 20210204
